FAERS Safety Report 11130507 (Version 1)
Quarter: 2015Q2

REPORT INFORMATION
  Report Type: Spontaneous
  Country: AR (occurrence: AR)
  Receive Date: 20150522
  Receipt Date: 20150522
  Transmission Date: 20150821
  Serious: Yes (Other)
  Sender: FDA-Public Use
  Company Number: AR-TAKEDA-2015MPI003335

PATIENT

DRUGS (3)
  1. CYCLOPHOSPHAMIDE. [Concomitant]
     Active Substance: CYCLOPHOSPHAMIDE
     Dosage: UNK
     Route: 065
  2. DEXAMETHASONE. [Concomitant]
     Active Substance: DEXAMETHASONE
     Dosage: DOSAGE FORM: UNSPECIFIED
     Route: 065
  3. VELCADE [Suspect]
     Active Substance: BORTEZOMIB
     Indication: PRODUCT USED FOR UNKNOWN INDICATION
     Dosage: 1.5 MG, 2/WEEK
     Route: 065

REACTIONS (5)
  - Diarrhoea [Unknown]
  - Hypovolaemia [Unknown]
  - Abdominal pain [Unknown]
  - Dehydration [Unknown]
  - Vomiting [Unknown]
